FAERS Safety Report 4337807-5 (Version None)
Quarter: 2004Q2

REPORT INFORMATION
  Report Type: 
  Country: None (occurrence: None)
  Receive Date: 20040406
  Receipt Date: 20030625
  Transmission Date: 20050107
  Serious: Yes (Hospitalization)
  Sender: FDA-Public Use
  Company Number: APP200301666 (0)

PATIENT
  Sex: Female

DRUGS (12)
  1. HEPARIN SODIUM INJECTION [Suspect]
     Indication: CENTRAL VENOUS CATHETERISATION
     Dosage: ADMINISTERED BETWEEN 1000 TO 3000 UNITS (1 IN 1 D), INTRAVENOUS
     Route: 042
     Dates: start: 20030407, end: 20030407
  2. LASIX [Concomitant]
  3. INDOCIN [Concomitant]
  4. SODIUM BICARBONATE [Concomitant]
  5. PHENOBARBITAL TAB [Concomitant]
  6. SURFAK [Concomitant]
  7. GENTAMICIN [Concomitant]
  8. DOBUTAMINE [Concomitant]
  9. DOPAMINE HCL [Concomitant]
  10. ATIVAN [Concomitant]
  11. FENTANYL [Concomitant]
  12. AMPICILLIN [Concomitant]

REACTIONS (2)
  - HAEMORRHAGE [None]
  - MEDICATION ERROR [None]
